FAERS Safety Report 7547440-X (Version None)
Quarter: 2011Q2

REPORT INFORMATION
  Report Type: 
  Country: None (occurrence: None)
  Receive Date: 20110614
  Receipt Date: 20110601
  Transmission Date: 20111010
  Serious: Yes (Hospitalization)
  Sender: FDA-Public Use
  Company Number: DE-UCBSA-019811

PATIENT
  Sex: Female
  Weight: 60 kg

DRUGS (13)
  1. VIMPAT [Suspect]
     Route: 048
     Dates: start: 20100920, end: 20100901
  2. FRISIUM [Concomitant]
     Dates: start: 20100901
  3. PANTOPRAZOLE [Concomitant]
     Indication: GASTRIC DISORDER
     Dates: start: 20100921, end: 20100927
  4. VIMPAT [Suspect]
     Route: 048
     Dates: start: 20110110, end: 20110110
  5. CLONAZEPAM [Concomitant]
     Dosage: NIGHTLY
     Dates: start: 20100927, end: 20100901
  6. LAMOTRIGINE [Concomitant]
     Indication: EPILEPSY
     Route: 048
     Dates: start: 20100901
  7. HEPARIN [Concomitant]
     Indication: THROMBOSIS PROPHYLAXIS
     Dosage: UNKNOWN DOSE
     Dates: start: 20100921, end: 20100927
  8. CLONAZEPAM [Concomitant]
     Dates: start: 20100901
  9. VIMPAT [Suspect]
     Dates: start: 20100922, end: 20100923
  10. VIMPAT [Suspect]
     Route: 048
     Dates: start: 20100927
  11. VIMPAT [Suspect]
     Indication: EPILEPSY
     Route: 048
     Dates: start: 20100901, end: 20100901
  12. VIMPAT [Suspect]
     Route: 048
     Dates: start: 20100908, end: 20100901
  13. ACETAMINOPHEN [Concomitant]
     Indication: PAIN
     Dosage: INTRAVENOUS SOLUTION
     Dates: start: 20100920, end: 20100920

REACTIONS (16)
  - SPEECH DISORDER [None]
  - NAUSEA [None]
  - VOMITING [None]
  - STATUS EPILEPTICUS [None]
  - HALLUCINATION [None]
  - DISORIENTATION [None]
  - HEADACHE [None]
  - DISTURBANCE IN ATTENTION [None]
  - DIPLOPIA [None]
  - FALL [None]
  - CONFUSIONAL STATE [None]
  - DIZZINESS [None]
  - HAEMATEMESIS [None]
  - NYSTAGMUS [None]
  - CONVULSION [None]
  - CERVICAL VERTEBRAL FRACTURE [None]
